FAERS Safety Report 8023070-0 (Version None)
Quarter: 2012Q1

REPORT INFORMATION
  Report Type: 
  Country: None (occurrence: None)
  Receive Date: 20120104
  Receipt Date: 20111229
  Transmission Date: 20120608
  Serious: Yes (Other)
  Sender: FDA-Public Use
  Company Number: GB-PFIZER INC-2012000155

PATIENT
  Age: 44 Year
  Sex: Female

DRUGS (2)
  1. HYDROCORTISONE [Suspect]
     Dosage: UNK
  2. FLUDROCORTISONE [Suspect]

REACTIONS (1)
  - ADRENOCORTICAL INSUFFICIENCY ACUTE [None]
